FAERS Safety Report 17888523 (Version 1)
Quarter: 2020Q2

REPORT INFORMATION
  Report Type: Spontaneous
  Country: US (occurrence: US)
  Receive Date: 20200612
  Receipt Date: 20200612
  Transmission Date: 20200714
  Serious: Yes (Life-Threatening, Hospitalization)
  Sender: FDA-Public Use
  Company Number: US-EMCURE PHARMACEUTICALS LTD-2020-EPL-000713

PATIENT
  Age: 71 Year
  Sex: Female

DRUGS (1)
  1. TRANEXAMIC ACID. [Suspect]
     Active Substance: TRANEXAMIC ACID
     Dosage: 300 MILLIGRAM
     Route: 037

REACTIONS (3)
  - Status epilepticus [Recovered/Resolved with Sequelae]
  - Myoclonus [Recovered/Resolved with Sequelae]
  - Wrong product administered [Unknown]
